FAERS Safety Report 18149634 (Version 1)
Quarter: 2020Q3

REPORT INFORMATION
  Report Type: Spontaneous
  Country: DE (occurrence: DE)
  Receive Date: 20200814
  Receipt Date: 20200814
  Transmission Date: 20201103
  Serious: Yes (Hospitalization)
  Sender: FDA-Public Use
  Company Number: DE-TEVA-2020-DE-1813947

PATIENT
  Age: 85 Year
  Sex: Male

DRUGS (12)
  1. LERCANIDIPIN [Concomitant]
     Active Substance: LERCANIDIPINE
     Dosage: 10 MILLIGRAM DAILY;  1?0?0?0
     Route: 048
  2. METAMIZOL [Concomitant]
     Active Substance: METAMIZOLE SODIUM
     Dosage: 2 DOSAGE FORMS DAILY; 1000 MG, 0.5?0.5?0.5?0.5,
     Route: 054
  3. INDAPAMID [Concomitant]
     Active Substance: INDAPAMIDE
     Dosage: 2.5 MILLIGRAM DAILY;  1?0?0?0
     Route: 048
  4. RAMIPRIL. [Concomitant]
     Active Substance: RAMIPRIL
     Dosage: 10 MILLIGRAM DAILY;  1?0?0?0
     Route: 048
  5. METOPROLOL. [Suspect]
     Active Substance: METOPROLOL
     Dosage: 100 MILLIGRAM DAILY; 1?0?1?0
     Route: 048
  6. ACETYLSALICYLSAURE [Concomitant]
     Active Substance: ASPIRIN
     Dosage: 100 MILLIGRAM DAILY;  0?1?0?0
     Route: 048
  7. URAPIDIL [Concomitant]
     Active Substance: URAPIDIL
     Dosage: 6 DOSAGE FORMS DAILY; 30 MG, 2?2?2?0
     Route: 048
  8. ZOPICLON [Concomitant]
     Active Substance: ZOPICLONE
     Dosage: 3.75 MILLIGRAM DAILY;  0?0?0?1
     Route: 048
  9. PREGABALIN. [Concomitant]
     Active Substance: PREGABALIN
     Dosage: 200 MILLIGRAM DAILY;  1?0?0?1
     Route: 048
  10. MIRTAZAPIN [Concomitant]
     Active Substance: MIRTAZAPINE
     Dosage: 30 MILLIGRAM DAILY;  0?0?0?1
     Route: 048
  11. TORASEMID [Concomitant]
     Active Substance: TORSEMIDE
     Dosage: 10 MILLIGRAM DAILY; 1?0?0?0
     Route: 048
  12. APIXABAN [Concomitant]
     Active Substance: APIXABAN
     Dosage: 5 MILLIGRAM DAILY; 1?0?1?0
     Route: 048

REACTIONS (2)
  - Electrolyte imbalance [Unknown]
  - Bradycardia [Unknown]
